FAERS Safety Report 5304653-5 (Version None)
Quarter: 2007Q2

REPORT INFORMATION
  Report Type: 
  Country: None (occurrence: None)
  Receive Date: 20070416
  Receipt Date: 20070402
  Transmission Date: 20071010
  Serious: Yes (Hospitalization)
  Sender: FDA-Public Use
  Company Number: 235065

PATIENT
  Age: 25 Year
  Sex: Female

DRUGS (5)
  1. XOLAIR [Suspect]
     Indication: ASTHMA
     Dosage: 450 MG, UNK, SUBCUTANEOUS
     Route: 058
     Dates: start: 20061109, end: 20061109
  2. THEOLAIR-SR [Concomitant]
  3. D-CURE (CHOLECALCIFEROL) [Concomitant]
  4. CALCIUM (CALCIUM NOS) [Concomitant]
  5. METHYLPREDNISOLONE [Concomitant]

REACTIONS (2)
  - ASTHMA [None]
  - RHINITIS ALLERGIC [None]
